FAERS Safety Report 11484856 (Version 1)
Quarter: 2015Q3

REPORT INFORMATION
  Report Type: Spontaneous
  Country: US (occurrence: None)
  Receive Date: 20150909
  Receipt Date: 20150909
  Transmission Date: 20151125
  Serious: Yes (Hospitalization)
  Sender: FDA-Public Use
  Company Number: None

PATIENT
  Age: 37 Year
  Sex: Male
  Weight: 76.34 kg

DRUGS (1)
  1. ACETAMINOPHEN/HYDROCODONE [Suspect]
     Active Substance: ACETAMINOPHEN\HYDROCODONE
     Indication: PAIN
     Dosage: 10/325 MG
     Route: 048
     Dates: start: 20150902, end: 20150902

REACTIONS (6)
  - Dyspnoea [None]
  - Somnolence [None]
  - Respiratory depression [None]
  - Loss of consciousness [None]
  - Oxygen saturation decreased [None]
  - Drug abuse [None]

NARRATIVE: CASE EVENT DATE: 20150902
